FAERS Safety Report 11622267 (Version 1)
Quarter: 2015Q4

REPORT INFORMATION
  Report Type: Spontaneous
  Country: US (occurrence: None)
  Receive Date: 20151009
  Receipt Date: 20151009
  Transmission Date: 20160304
  Serious: No
  Sender: FDA-Public Use
  Company Number: None

PATIENT
  Age: 55 Year
  Sex: Male

DRUGS (4)
  1. DICLOFENAC [Suspect]
     Active Substance: DICLOFENAC
     Indication: PAIN IN EXTREMITY
     Dates: start: 20140219, end: 20140306
  2. DOXYCYCLINE. [Suspect]
     Active Substance: DOXYCYCLINE
     Indication: PAIN IN EXTREMITY
     Dates: start: 20140219, end: 20140301
  3. CELECOXIB. [Suspect]
     Active Substance: CELECOXIB
     Indication: ABSCESS LIMB
     Dates: start: 20140315, end: 20140402
  4. AMOXICILLIN. [Suspect]
     Active Substance: AMOXICILLIN
     Indication: ABSCESS LIMB
     Dates: start: 20140219, end: 20140301

REACTIONS (9)
  - Nausea [None]
  - Pneumonia [None]
  - Steatohepatitis [None]
  - Granulomatous liver disease [None]
  - Jaundice [None]
  - Vomiting [None]
  - Decreased appetite [None]
  - Juvenile idiopathic arthritis [None]
  - Drug-induced liver injury [None]

NARRATIVE: CASE EVENT DATE: 20140412
